FAERS Safety Report 19804815 (Version 2)
Quarter: 2021Q3

REPORT INFORMATION
  Report Type: Spontaneous
  Country: CA (occurrence: CA)
  Receive Date: 20210908
  Receipt Date: 20210913
  Transmission Date: 20211014
  Serious: Yes (Death, Other)
  Sender: FDA-Public Use
  Company Number: CA-PFIZER INC-2021807287

PATIENT
  Age: 68 Year
  Sex: Female
  Weight: 79 kg

DRUGS (4)
  1. ZIRABEV [Suspect]
     Active Substance: BEVACIZUMAB-BVZR
     Indication: GLIOBLASTOMA
     Dosage: 1100 MG (15MG/KG), EVERY 3 WEEKS
     Route: 042
     Dates: start: 20210716
  2. ZIRABEV [Suspect]
     Active Substance: BEVACIZUMAB-BVZR
     Dosage: 1100 MG (15MG/KG), EVERY 3 WEEKS
     Route: 042
     Dates: start: 20210716, end: 20210806
  3. LOMUSTINE. [Concomitant]
     Active Substance: LOMUSTINE
     Dosage: UNK
  4. ZIRABEV [Suspect]
     Active Substance: BEVACIZUMAB-BVZR
     Dosage: 1100 MG (15MG/KG), EVERY 3 WEEKS
     Route: 042
     Dates: start: 20210716

REACTIONS (6)
  - Loss of personal independence in daily activities [Unknown]
  - Condition aggravated [Unknown]
  - Off label use [Unknown]
  - Heart rate decreased [Unknown]
  - Death [Fatal]
  - Blood pressure increased [Unknown]

NARRATIVE: CASE EVENT DATE: 2021
